FAERS Safety Report 23086300 (Version 2)
Quarter: 2023Q4

REPORT INFORMATION
  Report Type: Spontaneous
  Country: PT (occurrence: PT)
  Receive Date: 20231019
  Receipt Date: 20231222
  Transmission Date: 20240110
  Serious: Yes (Hospitalization, Other)
  Sender: FDA-Public Use
  Company Number: PT-BAYER-2023A143969

PATIENT
  Age: 80 Year
  Sex: Male

DRUGS (9)
  1. XARELTO [Suspect]
     Active Substance: RIVAROXABAN
     Indication: Embolism venous
     Dosage: 20 MG, QD
     Route: 048
     Dates: start: 2019
  2. SIMVASTATIN [Concomitant]
     Active Substance: SIMVASTATIN
     Dosage: 20 MG, QD
  3. PANTOPRAZOLE [Concomitant]
     Active Substance: PANTOPRAZOLE
     Dosage: 40 MG, QD
  4. BICALUTAMIDE [Concomitant]
     Active Substance: BICALUTAMIDE
     Dosage: 50 MG, QD
     Dates: start: 202307
  5. FENTANYL [Concomitant]
     Active Substance: FENTANYL\FENTANYL CITRATE
     Dosage: 50 UG/H EVERY 3 DAYS
  6. MORPHINE [Concomitant]
     Active Substance: MORPHINE
     Dosage: 10 MG
     Dates: start: 202307
  7. BISACODYL [Concomitant]
     Active Substance: BISACODYL
     Dosage: 5 MG
  8. TINZAPARIN [Concomitant]
     Active Substance: TINZAPARIN
     Dosage: 10.000 IU, QD
  9. TINZAPARIN [Concomitant]
     Active Substance: TINZAPARIN
     Dosage: 14.000 IU/DAY

REACTIONS (7)
  - Haemoptysis [Recovered/Resolved]
  - Pyrexia [Recovered/Resolved]
  - Respiratory failure [Recovered/Resolved]
  - Pulmonary alveolar haemorrhage [Recovered/Resolved]
  - Pulmonary embolism [Recovered/Resolved]
  - Prothrombin time prolonged [Recovered/Resolved]
  - Haemoglobin decreased [Recovered/Resolved]
